FAERS Safety Report 20421939 (Version 2)
Quarter: 2022Q1

REPORT INFORMATION
  Report Type: Report from Study
  Country: GB (occurrence: None)
  Receive Date: 20220203
  Receipt Date: 20220218
  Transmission Date: 20220424
  Serious: Yes (Hospitalization)
  Sender: FDA-Public Use
  Company Number: GB-ROCHE-3011313

PATIENT
  Age: 62 Year
  Sex: Male
  Weight: 71.9 kg

DRUGS (2)
  1. ATEZOLIZUMAB [Suspect]
     Active Substance: ATEZOLIZUMAB
     Indication: Renal cell carcinoma
     Dosage: DOSE LAST STUDY DRUG ADMIN PRIOR AE AND SAE 1200 MG, START DATE OF MOST RECENT DOSE OF STUDY DRUG PR
     Route: 042
     Dates: start: 20211216
  2. CABOZANTINIB [Suspect]
     Active Substance: CABOZANTINIB
     Indication: Renal cell carcinoma
     Dosage: DOSE LAST STUDY DRUG ADMIN PRIOR AE AND SAE 60 MG, START DATE OF MOST RECENT DOSE OF STUDY DRUG PRIO
     Route: 048
     Dates: start: 20211216

REACTIONS (1)
  - Skin toxicity [Not Recovered/Not Resolved]

NARRATIVE: CASE EVENT DATE: 20220123
